FAERS Safety Report 21926255 (Version 1)
Quarter: 2023Q1

REPORT INFORMATION
  Report Type: Spontaneous
  Country: US (occurrence: US)
  Receive Date: 20230130
  Receipt Date: 20230130
  Transmission Date: 20230417
  Serious: Yes (Other)
  Sender: FDA-Public Use
  Company Number: US-HALEON-USCH2023GSK003941

PATIENT

DRUGS (4)
  1. FLUTICASONE [Suspect]
     Active Substance: FLUTICASONE
     Indication: Chronic obstructive pulmonary disease
     Dosage: UNK
     Route: 055
  2. CROMOLYN [Suspect]
     Active Substance: CROMOLYN
     Indication: Chronic obstructive pulmonary disease
     Dosage: UNK
     Route: 055
  3. ALBUTEROL [Suspect]
     Active Substance: ALBUTEROL
     Indication: Chronic obstructive pulmonary disease
     Dosage: UNK
     Route: 055
  4. IPRATROPIUM [Suspect]
     Active Substance: IPRATROPIUM
     Indication: Chronic obstructive pulmonary disease
     Dosage: UNK
     Route: 055

REACTIONS (5)
  - Pseudophaeochromocytoma [Unknown]
  - Dyspnoea [Unknown]
  - Dizziness [Unknown]
  - Flushing [Unknown]
  - Drug intolerance [Unknown]
